FAERS Safety Report 6641602-1 (Version None)
Quarter: 2010Q1

REPORT INFORMATION
  Report Type: 
  Country: None (occurrence: None)
  Receive Date: 20100317
  Receipt Date: 20100317
  Transmission Date: 20100710
  Serious: No
  Sender: FDA-Public Use
  Company Number: None

PATIENT
  Age: 70 Year
  Sex: Male
  Weight: 80.01 kg

DRUGS (1)
  1. OMNIPAQUE 140 [Suspect]
     Indication: ANGIOGRAM
     Dosage: 350 ONCE IV
     Route: 042
     Dates: start: 20100315, end: 20100315

REACTIONS (3)
  - PRURITUS [None]
  - RASH [None]
  - URTICARIA [None]
